FAERS Safety Report 5313449-X (Version None)
Quarter: 2007Q2

REPORT INFORMATION
  Report Type: 
  Country: None (occurrence: None)
  Receive Date: 20070424
  Receipt Date: 20070409
  Transmission Date: 20071010
  Serious: Yes (Death)
  Sender: FDA-Public Use
  Company Number: 2007US000796

PATIENT
  Age: 22 Year
  Sex: 0

DRUGS (3)
  1. PROGRAF [Suspect]
     Indication: HEART AND LUNG TRANSPLANT
  2. AZATHIOPRINE [Concomitant]
  3. PREDNISOLONE [Concomitant]

REACTIONS (2)
  - DISSEMINATED INTRAVASCULAR COAGULATION [None]
  - HERPES ZOSTER DISSEMINATED [None]
